FAERS Safety Report 7822641-1 (Version None)
Quarter: 2011Q4

REPORT INFORMATION
  Report Type: 
  Country: None (occurrence: None)
  Receive Date: 20111018
  Receipt Date: 20111011
  Transmission Date: 20120403
  Serious: Yes (Other)
  Sender: FDA-Public Use
  Company Number: US-US-EMD SERONO, INC.-7089265

PATIENT
  Sex: Female

DRUGS (1)
  1. REBIF [Suspect]
     Indication: MULTIPLE SCLEROSIS
     Route: 058
     Dates: start: 20110411, end: 20110501

REACTIONS (7)
  - TREMOR [None]
  - FATIGUE [None]
  - FEELING ABNORMAL [None]
  - ARTHRALGIA [None]
  - IDIOPATHIC THROMBOCYTOPENIC PURPURA [None]
  - ASTHENIA [None]
  - BACK PAIN [None]
